FAERS Safety Report 12543862 (Version 5)
Quarter: 2017Q1

REPORT INFORMATION
  Report Type: Report from Study
  Country: IL (occurrence: IL)
  Receive Date: 20160711
  Receipt Date: 20170120
  Transmission Date: 20170428
  Serious: Yes (Death, Hospitalization, Other)
  Sender: FDA-Public Use
  Company Number: IL-AMGEN-ISRSL2016087531

PATIENT
  Age: 70 Year
  Sex: Male

DRUGS (13)
  1. CALCIUM PLUS [Concomitant]
     Dosage: UNK UNK, BID
  2. GUTT [Concomitant]
     Dosage: UNK UNK, QD
     Route: 048
  3. ZOLADEX [Concomitant]
     Active Substance: GOSERELIN ACETATE
     Dosage: UNK, Q4WK
     Route: 058
  4. LANTON [Concomitant]
     Dosage: 15 MG, QD
  5. NPLATE [Suspect]
     Active Substance: ROMIPLOSTIM
     Dosage: 750 MUG, QWK
     Route: 058
  6. SOMATULINE [Concomitant]
     Active Substance: LANREOTIDE ACETATE
     Indication: CARCINOID TUMOUR
     Dosage: 120 MG, EVERY 28 DAYS
     Route: 058
     Dates: start: 201207
  7. SOMATULINE [Concomitant]
     Active Substance: LANREOTIDE ACETATE
     Indication: NEUROENDOCRINE TUMOUR
  8. NPLATE [Suspect]
     Active Substance: ROMIPLOSTIM
     Indication: IMMUNE THROMBOCYTOPENIC PURPURA
     Dosage: 700 MUG, QWK
     Route: 065
     Dates: start: 20160509, end: 20160920
  9. XGEVA [Suspect]
     Active Substance: DENOSUMAB
     Indication: PRODUCT USED FOR UNKNOWN INDICATION
     Dosage: UNK
     Route: 058
     Dates: end: 20160920
  10. BONDORMIN [Concomitant]
     Active Substance: BROTIZOLAM
     Dosage: 0.25 MG, QD
  11. LIPITOR [Concomitant]
     Active Substance: ATORVASTATIN CALCIUM
     Dosage: 20 MG, QD
  12. CARDILOC [Concomitant]
     Active Substance: BISOPROLOL FUMARATE
     Dosage: 2.5 MG, QD
  13. VABEN [Concomitant]
     Active Substance: OXAZEPAM
     Dosage: 10 MG, QD

REACTIONS (7)
  - Splenectomy [Unknown]
  - Asthenia [Unknown]
  - Pneumonia [Unknown]
  - Hepatic failure [Fatal]
  - Platelet count decreased [Not Recovered/Not Resolved]
  - Drug ineffective [Unknown]
  - Faeces discoloured [Recovered/Resolved]

NARRATIVE: CASE EVENT DATE: 2016
